FAERS Safety Report 8922479 (Version 1)
Quarter: 2012Q4

REPORT INFORMATION
  Report Type: 
  Country: MX (occurrence: MX)
  Receive Date: 20121123
  Receipt Date: 20121123
  Transmission Date: 20130627
  Serious: Yes (Death)
  Sender: FDA-Public Use
  Company Number: MX-PFIZER INC-2012292536

PATIENT
  Age: 65 Year
  Sex: Female
  Weight: 45 kg

DRUGS (3)
  1. CELEBREX [Suspect]
     Indication: OSTEOARTHRITIS
     Dosage: 200 mg, UNK
     Route: 048
  2. ENALAPRIL MALEATE [Concomitant]
  3. LOSARTAN [Concomitant]

REACTIONS (1)
  - Infarction [Fatal]
